FAERS Safety Report 23453529 (Version 2)
Quarter: 2024Q1

REPORT INFORMATION
  Report Type: Spontaneous
  Country: JP (occurrence: JP)
  Receive Date: 20240129
  Receipt Date: 20240201
  Transmission Date: 20240410
  Serious: Yes (Hospitalization)
  Sender: FDA-Public Use
  Company Number: JP-BAUSCH-BL-2024-001254

PATIENT
  Age: 7 Decade
  Sex: Female

DRUGS (3)
  1. MOVIPREP [Suspect]
     Active Substance: ASCORBIC ACID\POLYETHYLENE GLYCOL 3350\POTASSIUM CHLORIDE\SODIUM ASCORBATE\SODIUM CHLORIDE\SODIUM SU
     Indication: Bowel preparation
     Route: 048
  2. POLYETHYLENE GLYCOLS\POTASSIUM CHLORIDE\SODIUM BICARBONATE\SODIUM CHLO [Suspect]
     Active Substance: POLYETHYLENE GLYCOLS\POTASSIUM CHLORIDE\SODIUM BICARBONATE\SODIUM CHLORIDE\SODIUM SULFATE
     Indication: Bowel preparation
     Route: 065
  3. POTASSIUM CHLORIDE\SODIUM BICARBONATE\SODIUM SULFATE [Suspect]
     Active Substance: POTASSIUM CHLORIDE\SODIUM BICARBONATE\SODIUM SULFATE
     Indication: Bowel preparation
     Route: 065

REACTIONS (3)
  - Ileus [Unknown]
  - Drug ineffective [Unknown]
  - Contraindicated product administered [Unknown]
